FAERS Safety Report 15758859 (Version 1)
Quarter: 2018Q4

REPORT INFORMATION
  Report Type: Spontaneous
  Country: DE (occurrence: DE)
  Receive Date: 20181225
  Receipt Date: 20181225
  Transmission Date: 20190205
  Serious: Yes (Hospitalization, Other)
  Sender: FDA-Public Use
  Company Number: PHHY2018DE193846

PATIENT
  Sex: Female

DRUGS (1)
  1. INTERFERON BETA-1B [Suspect]
     Active Substance: INTERFERON BETA-1B
     Indication: MULTIPLE SCLEROSIS
     Dosage: 250 UG, QOD
     Route: 058
     Dates: start: 20000101

REACTIONS (13)
  - Injection site reaction [Unknown]
  - Drug hypersensitivity [Not Recovered/Not Resolved]
  - Restless legs syndrome [Not Recovered/Not Resolved]
  - Food allergy [Not Recovered/Not Resolved]
  - Contrast media allergy [Not Recovered/Not Resolved]
  - Allergy to animal [Not Recovered/Not Resolved]
  - Urostomy complication [Not Recovered/Not Resolved]
  - Contusion [Recovering/Resolving]
  - Seasonal allergy [Not Recovered/Not Resolved]
  - Fall [Recovering/Resolving]
  - Photosensitivity reaction [Not Recovered/Not Resolved]
  - Muscular weakness [Not Recovered/Not Resolved]
  - Concussion [Recovering/Resolving]

NARRATIVE: CASE EVENT DATE: 20150101
